FAERS Safety Report 8780219 (Version 1)
Quarter: 2012Q4

REPORT INFORMATION
  Report Type: Spontaneous
  Country: US (occurrence: None)
  Receive Date: 20120904
  Receipt Date: 20120904
  Transmission Date: 20130627
  Serious: Yes (Hospitalization)
  Sender: FDA-Public Use
  Company Number: None

PATIENT
  Age: 65 Year
  Sex: Male
  Weight: 94.1 kg

DRUGS (1)
  1. HEPARIN [Suspect]
     Dosage: 25,000 units
     Route: 042
     Dates: start: 20120812, end: 20120813

REACTIONS (3)
  - Lower gastrointestinal haemorrhage [None]
  - Deep vein thrombosis [None]
  - Acute coronary syndrome [None]
